FAERS Safety Report 20771011 (Version 1)
Quarter: 2022Q2

REPORT INFORMATION
  Report Type: Spontaneous
  Country: US (occurrence: US)
  Receive Date: 20220429
  Receipt Date: 20220429
  Transmission Date: 20220721
  Serious: Yes (Other)
  Sender: FDA-Public Use
  Company Number: US-PFIZER INC-202200462040

PATIENT
  Age: 64 Year
  Sex: Male
  Weight: 75.3 kg

DRUGS (1)
  1. SILDENAFIL CITRATE [Suspect]
     Active Substance: SILDENAFIL CITRATE
     Dosage: TAKE 1/2 - 1 TABLET BY MOUTH AS DIRECTED AS NEEDED DO NOT TAKE MORE THAN 1 TABLET IN 24 HOURS

REACTIONS (7)
  - Tremor [Unknown]
  - Eyelid ptosis [Unknown]
  - Claudication of jaw muscles [Unknown]
  - Dysarthria [Unknown]
  - Fatigue [Unknown]
  - Pain in extremity [Unknown]
  - Back pain [Unknown]
